FAERS Safety Report 4531483-4 (Version None)
Quarter: 2004Q4

REPORT INFORMATION
  Report Type: 
  Country: None (occurrence: None)
  Receive Date: 20041216
  Receipt Date: 20041124
  Transmission Date: 20050328
  Serious: Yes (Hospitalization, Other)
  Sender: FDA-Public Use
  Company Number: USA040156731

PATIENT
  Age: 48 Year
  Sex: Female
  Weight: 68 kg

DRUGS (25)
  1. PROZAC [Suspect]
     Indication: DEPRESSION
     Dosage: 40 MG
     Dates: start: 19900501, end: 20030922
  2. ZYPREXA [Suspect]
     Indication: SOMNOLENCE
     Dosage: 5 MG/1 AT BEDTIME
     Dates: start: 20030404
  3. PROZAC WEEKLY [Concomitant]
  4. FLUOXETINE [Concomitant]
  5. KLONOPIN [Concomitant]
  6. LEXAPRO [Concomitant]
  7. SERZONE [Concomitant]
  8. XANAX [Concomitant]
  9. TOPAMAX [Concomitant]
  10. MULTIVITAMIN [Concomitant]
  11. TRAZADONE (TRAZODONE) [Concomitant]
  12. AMBIEN [Concomitant]
  13. ALPRAZOLAM [Concomitant]
  14. BUSPAR [Concomitant]
  15. RISPERDAL [Concomitant]
  16. CLONIDINE [Concomitant]
  17. LAMICTAL [Concomitant]
  18. PREMARIN [Concomitant]
  19. ESTRATEST [Concomitant]
  20. ORLISTAT [Concomitant]
  21. PHENTERMINE [Concomitant]
  22. FAMVIR (PENCICLOVIR) [Concomitant]
  23. ZOVIRAX [Concomitant]
  24. EFFEXOR XR [Concomitant]
  25. WELLBUTRIN [Concomitant]

REACTIONS (41)
  - ABNORMAL BEHAVIOUR [None]
  - AGITATION [None]
  - ANGER [None]
  - ANXIETY [None]
  - ARTHRITIS [None]
  - BACK PAIN [None]
  - BLINDNESS TRANSIENT [None]
  - CHEST PAIN [None]
  - CRYING [None]
  - DIZZINESS POSTURAL [None]
  - DRUG INEFFECTIVE [None]
  - ENTEROCELE [None]
  - FAECAL INCONTINENCE [None]
  - FALL [None]
  - FATIGUE [None]
  - GASTROINTESTINAL DISORDER [None]
  - HEPATIC CYST [None]
  - HOT FLUSH [None]
  - HYPOACUSIS [None]
  - HYPOTENSION [None]
  - IMPAIRED HEALING [None]
  - INSOMNIA [None]
  - INTENTIONAL SELF-INJURY [None]
  - LIBIDO DECREASED [None]
  - LYMPHADENOPATHY [None]
  - MEMORY IMPAIRMENT [None]
  - MOOD SWINGS [None]
  - NERVE INJURY [None]
  - ONYCHOMYCOSIS [None]
  - OSTEOPENIA [None]
  - OVERWEIGHT [None]
  - PALPITATIONS [None]
  - PANIC ATTACK [None]
  - PHARMACEUTICAL PRODUCT COMPLAINT [None]
  - RIB FRACTURE [None]
  - SEXUAL DYSFUNCTION [None]
  - SUICIDAL IDEATION [None]
  - SUICIDE ATTEMPT [None]
  - TENSION HEADACHE [None]
  - TOOTHACHE [None]
  - WEIGHT FLUCTUATION [None]
